FAERS Safety Report 10866912 (Version 1)
Quarter: 2015Q1

REPORT INFORMATION
  Report Type: Spontaneous
  Country: IT (occurrence: IT)
  Receive Date: 20150225
  Receipt Date: 20150225
  Transmission Date: 20150721
  Serious: Yes (Life-Threatening, Other)
  Sender: FDA-Public Use
  Company Number: IT-BAYER-2015-023056

PATIENT
  Age: 89 Year
  Sex: Male

DRUGS (5)
  1. CIPROFLOXACIN. [Suspect]
     Active Substance: CIPROFLOXACIN
     Indication: BRONCHOPNEUMONIA
     Dosage: UNK, UNK
  2. MEROPENEM. [Suspect]
     Active Substance: MEROPENEM
     Indication: PROTEUS TEST POSITIVE
  3. CIPROFLOXACIN. [Suspect]
     Active Substance: CIPROFLOXACIN
     Indication: CONDITION AGGRAVATED
  4. LEVOFLOXACIN. [Suspect]
     Active Substance: LEVOFLOXACIN
     Indication: BRONCHOPNEUMONIA
  5. MEROPENEM. [Suspect]
     Active Substance: MEROPENEM
     Indication: URINARY TRACT INFECTION BACTERIAL
     Dosage: UNK UNK, UNK

REACTIONS (5)
  - Pseudomembranous colitis [Recovering/Resolving]
  - Septic shock [Recovered/Resolved]
  - Clostridium difficile sepsis [Recovered/Resolved]
  - Thrombocytopenia [Recovered/Resolved]
  - Clostridium difficile infection [Recovered/Resolved]
